FAERS Safety Report 21302080 (Version 1)
Quarter: 2022Q3

REPORT INFORMATION
  Report Type: Spontaneous
  Country: US (occurrence: US)
  Receive Date: 20220907
  Receipt Date: 20220907
  Transmission Date: 20221026
  Serious: No
  Sender: FDA-Public Use
  Company Number: US-ELI_LILLY_AND_COMPANY-US202208014715

PATIENT
  Sex: Female

DRUGS (1)
  1. TRULICITY [Suspect]
     Active Substance: DULAGLUTIDE
     Indication: Type 2 diabetes mellitus
     Dosage: 0.75 MG, UNKNOWN
     Route: 058

REACTIONS (9)
  - Haemorrhoids [Recovered/Resolved]
  - Feeling abnormal [Unknown]
  - Rash [Recovered/Resolved]
  - Acne [Unknown]
  - Skin burning sensation [Unknown]
  - Erythema [Unknown]
  - Muscle twitching [Unknown]
  - Constipation [Recovered/Resolved]
  - Abdominal discomfort [Unknown]
